FAERS Safety Report 24608951 (Version 1)
Quarter: 2024Q4

REPORT INFORMATION
  Report Type: Report from Study
  Country: GB (occurrence: GB)
  Receive Date: 20241112
  Receipt Date: 20241112
  Transmission Date: 20250115
  Serious: Yes (Other)
  Sender: TEVA
  Company Number: GB-TEVA-VS-3262339

PATIENT
  Age: 47 Year
  Sex: Female

DRUGS (1)
  1. AJOVY [Suspect]
     Active Substance: FREMANEZUMAB-VFRM
     Indication: Product used for unknown indication
     Route: 065
     Dates: end: 202409

REACTIONS (4)
  - Abscess [Unknown]
  - Peripheral swelling [Unknown]
  - Injection site erythema [Unknown]
  - Infection [Unknown]

NARRATIVE: CASE EVENT DATE: 20240101
